FAERS Safety Report 9602008 (Version 1)
Quarter: 2013Q4

REPORT INFORMATION
  Report Type: Report from Study
  Country: GB (occurrence: GB)
  Receive Date: 20131007
  Receipt Date: 20131007
  Transmission Date: 20140711
  Serious: Yes (Other)
  Sender: FDA-Public Use
  Company Number: PHFR2013GB005612

PATIENT
  Sex: Female

DRUGS (1)
  1. SANDOSTATIN [Suspect]
     Dosage: UNK UKN, UNK
     Dates: start: 20130531

REACTIONS (3)
  - Gingival bleeding [Not Recovered/Not Resolved]
  - Onychoclasis [Not Recovered/Not Resolved]
  - Fatigue [Not Recovered/Not Resolved]
